FAERS Safety Report 9834913 (Version 1)
Quarter: 2014Q1

REPORT INFORMATION
  Report Type: Spontaneous
  Country: US (occurrence: US)
  Receive Date: 20140122
  Receipt Date: 20140122
  Transmission Date: 20141002
  Serious: No
  Sender: FDA-Public Use
  Company Number: US-BAYER-2014-011067

PATIENT
  Age: 41 Year
  Sex: Female
  Weight: 52.15 kg

DRUGS (2)
  1. ALEVE TABLET [Suspect]
     Indication: HEADACHE
     Dosage: 1 DF, BID
     Route: 048
     Dates: start: 201401, end: 20140115
  2. CENTRUM [Concomitant]

REACTIONS (2)
  - Drug ineffective [None]
  - Abdominal pain upper [None]
